FAERS Safety Report 21205867 (Version 3)
Quarter: 2022Q3

REPORT INFORMATION
  Report Type: Spontaneous
  Country: AU (occurrence: AU)
  Receive Date: 20220812
  Receipt Date: 20220825
  Transmission Date: 20221026
  Serious: Yes (Other)
  Sender: FDA-Public Use
  Company Number: AU-SA-SAC20220809000673

PATIENT
  Age: 51 Year
  Sex: Female

DRUGS (4)
  1. DUPILUMAB [Suspect]
     Active Substance: DUPILUMAB
     Indication: Eczema
     Dosage: 300 MG, QOW
     Route: 058
     Dates: start: 20220412, end: 202208
  2. FEXOFENADINE [Concomitant]
     Active Substance: FEXOFENADINE HYDROCHLORIDE
     Dosage: 180 MG, QD
     Route: 048
  3. TEMAZEPAM [Concomitant]
     Active Substance: TEMAZEPAM
     Dosage: 10 MG, MDU
     Route: 048
  4. VOLTAREN [Concomitant]
     Active Substance: DICLOFENAC SODIUM
     Dosage: 25 MG, TID

REACTIONS (15)
  - Pain [Not Recovered/Not Resolved]
  - Pain in extremity [Unknown]
  - Swelling [Unknown]
  - Bursitis [Unknown]
  - Neck pain [Recovering/Resolving]
  - Back pain [Recovering/Resolving]
  - Peripheral swelling [Unknown]
  - Condition aggravated [Unknown]
  - Anxiety [Unknown]
  - Depression [Unknown]
  - Asthma [Unknown]
  - Post-traumatic stress disorder [Unknown]
  - COVID-19 [Unknown]
  - Insomnia [Unknown]
  - Arthralgia [Unknown]

NARRATIVE: CASE EVENT DATE: 20220101
